FAERS Safety Report 8073585-4 (Version None)
Quarter: 2012Q1

REPORT INFORMATION
  Report Type: 
  Country: None (occurrence: None)
  Receive Date: 20120126
  Receipt Date: 20120125
  Transmission Date: 20120608
  Serious: Yes (Hospitalization)
  Sender: FDA-Public Use
  Company Number: CN-ABBOTT-11P-035-0885799-00

PATIENT
  Sex: Male
  Weight: 44 kg

DRUGS (6)
  1. FLUPIMAZINE [Concomitant]
     Indication: SEDATIVE THERAPY
     Dates: start: 20101010, end: 20101024
  2. FUROSEMIDE [Concomitant]
     Indication: POLYURIA
     Dates: start: 20100925
  3. CHLORPROMAZINE HCL [Concomitant]
     Indication: SEDATIVE THERAPY
     Dates: start: 20100925, end: 20101011
  4. VALPROATE SODIUM [Suspect]
     Indication: PROPHYLAXIS
  5. VALPROATE SODIUM [Suspect]
     Indication: EPILEPSY
     Route: 048
     Dates: start: 20100925, end: 20101104
  6. MANNITOL [Concomitant]
     Indication: POLYURIA
     Dates: start: 20100925

REACTIONS (10)
  - JAUNDICE [None]
  - FATIGUE [None]
  - DECREASED APPETITE [None]
  - YELLOW SKIN [None]
  - PRURITUS [None]
  - ASPARTATE AMINOTRANSFERASE INCREASED [None]
  - CHROMATURIA [None]
  - ALANINE AMINOTRANSFERASE INCREASED [None]
  - GAMMA-GLUTAMYLTRANSFERASE INCREASED [None]
  - BLOOD BILIRUBIN INCREASED [None]
